FAERS Safety Report 10065133 (Version 1)
Quarter: 2014Q1

REPORT INFORMATION
  Report Type: Spontaneous
  Country: US (occurrence: None)
  Receive Date: 20140328
  Receipt Date: 20140328
  Transmission Date: 20141002
  Serious: No
  Sender: FDA-Public Use
  Company Number: CABO-14003897

PATIENT
  Age: 53 Year
  Sex: Male
  Weight: 84.1 kg

DRUGS (7)
  1. COMETRIQ [Suspect]
     Indication: THYROID CANCER
     Route: 048
     Dates: start: 20140109, end: 20140221
  2. PAXIL [Concomitant]
  3. LEVOTHYROXINE (LEVOTHYROXINE) [Concomitant]
  4. BACLOFEN (BACLOFEN) [Concomitant]
  5. CALCITROL [Concomitant]
  6. GABAPENTIN (GABAPENTIN) [Concomitant]
  7. SWISH AND SWALLOW (SWISH AND SWALLOW) [Concomitant]

REACTIONS (7)
  - Dry mouth [None]
  - Thirst [None]
  - Fatigue [None]
  - Dehydration [None]
  - Glossodynia [None]
  - Oral discomfort [None]
  - Gingival pain [None]
